FAERS Safety Report 5070097-7 (Version None)
Quarter: 2006Q3

REPORT INFORMATION
  Report Type: 
  Country: None (occurrence: None)
  Receive Date: 20060801
  Receipt Date: 20060801
  Transmission Date: 20061208
  Serious: Yes (Death)
  Sender: FDA-Public Use
  Company Number: None

PATIENT
  Age: 83 Year
  Sex: Female
  Weight: 76.3 kg

DRUGS (4)
  1. ANGIOMAX [Suspect]
     Indication: CATHETERISATION CARDIAC
     Dosage: ONCE IV
     Route: 042
     Dates: start: 20060616, end: 20060616
  2. ANGIOMAX [Suspect]
     Indication: CORONARY ARTERIAL STENT INSERTION
     Dosage: ONCE IV
     Route: 042
     Dates: start: 20060616, end: 20060616
  3. CLOPIDOGREL [Suspect]
     Indication: CATHETERISATION CARDIAC
     Dosage: 300 MG X 1 THAN 75 MG DAILY
     Dates: start: 20060616, end: 20060617
  4. CLOPIDOGREL [Suspect]
     Indication: CORONARY ARTERIAL STENT INSERTION
     Dosage: 300 MG X 1 THAN 75 MG DAILY
     Dates: start: 20060616, end: 20060617

REACTIONS (12)
  - ACUTE MYOCARDIAL INFARCTION [None]
  - CARDIO-RESPIRATORY ARREST [None]
  - CORONARY ARTERY REOCCLUSION [None]
  - EJECTION FRACTION DECREASED [None]
  - GROIN PAIN [None]
  - HAEMATOMA [None]
  - HYPERHIDROSIS [None]
  - INTERVENTRICULAR SEPTUM RUPTURE [None]
  - PERIPHERAL COLDNESS [None]
  - RESPIRATORY DISTRESS [None]
  - THERAPY NON-RESPONDER [None]
  - TREATMENT NONCOMPLIANCE [None]
